FAERS Safety Report 9702112 (Version 1)
Quarter: 2013Q4

REPORT INFORMATION
  Report Type: Spontaneous
  Country: US (occurrence: None)
  Receive Date: 20131120
  Receipt Date: 20131120
  Transmission Date: 20140711
  Serious: No
  Sender: FDA-Public Use
  Company Number: None

PATIENT
  Age: 67 Year
  Sex: Female
  Weight: 99.34 kg

DRUGS (7)
  1. ATORVASTATIN CALCIUM [Suspect]
     Indication: BLOOD CHOLESTEROL INCREASED
     Route: 048
     Dates: start: 20130928, end: 20131021
  2. FLAX SEED OIL [Concomitant]
  3. VIT C [Concomitant]
  4. VIT B [Concomitant]
  5. MAGNESIUM [Concomitant]
  6. ANTI-OXIDENTS [Concomitant]
  7. ZYFLAMEND [Concomitant]

REACTIONS (3)
  - Arthralgia [None]
  - Arthritis [None]
  - Condition aggravated [None]
